FAERS Safety Report 14666168 (Version 6)
Quarter: 2018Q3

REPORT INFORMATION
  Report Type: Spontaneous
  Country: GR (occurrence: GR)
  Receive Date: 20180321
  Receipt Date: 20180718
  Transmission Date: 20181010
  Serious: Yes (Death, Life-Threatening, Other)
  Sender: FDA-Public Use
  Company Number: GR-ABBVIE-18P-083-2292409-00

PATIENT
  Age: 25 Year
  Sex: Male

DRUGS (18)
  1. QUETIAPINE. [Interacting]
     Active Substance: QUETIAPINE
     Indication: OVERDOSE
  2. QUETIAPINE. [Interacting]
     Active Substance: QUETIAPINE
     Indication: DEPRESSION
     Dosage: TABLET, FILM COATED;
     Route: 048
  3. DESLORATADINE. [Suspect]
     Active Substance: DESLORATADINE
     Indication: OVERDOSE
     Route: 065
  4. ALPRAZOLAM. [Interacting]
     Active Substance: ALPRAZOLAM
     Indication: DEPRESSION
     Route: 048
  5. VALPROIC ACID. [Suspect]
     Active Substance: VALPROIC ACID
     Indication: DEPRESSION
     Dosage: EXTENDED RELEASE
     Route: 048
  6. FLUOXETINE HYDROCHLORIDE. [Interacting]
     Active Substance: FLUOXETINE HYDROCHLORIDE
     Indication: OVERDOSE
  7. CITALOPRAM [Interacting]
     Active Substance: CITALOPRAM HYDROBROMIDE
     Indication: DEPRESSION
     Route: 065
  8. CITALOPRAM [Interacting]
     Active Substance: CITALOPRAM HYDROBROMIDE
     Indication: OVERDOSE
  9. PROPRANOLOL [Suspect]
     Active Substance: PROPRANOLOL HYDROCHLORIDE
     Indication: OVERDOSE
     Route: 065
  10. PERINDOPRIL [Suspect]
     Active Substance: PERINDOPRIL
     Indication: OVERDOSE
     Route: 065
  11. MOCLOBEMIDE [Interacting]
     Active Substance: MOCLOBEMIDE
     Indication: DEPRESSION
     Route: 065
  12. MOCLOBEMIDE [Interacting]
     Active Substance: MOCLOBEMIDE
     Indication: OVERDOSE
  13. SEROPRAM (CITALOPRAM HYDROBROMIDE) [Suspect]
     Active Substance: CITALOPRAM HYDROBROMIDE
     Indication: DEPRESSION
     Route: 065
  14. VALPROIC ACID. [Interacting]
     Active Substance: VALPROIC ACID
     Indication: OVERDOSE
  15. FLUOXETINE HYDROCHLORIDE. [Interacting]
     Active Substance: FLUOXETINE HYDROCHLORIDE
     Indication: DEPRESSION
     Route: 065
  16. ALPRAZOLAM. [Interacting]
     Active Substance: ALPRAZOLAM
     Indication: OVERDOSE
  17. FLURBIPROFEN. [Suspect]
     Active Substance: FLURBIPROFEN
     Indication: OVERDOSE
     Route: 065
  18. SEROPRAM (CITALOPRAM HYDROBROMIDE) [Suspect]
     Active Substance: CITALOPRAM HYDROBROMIDE
     Indication: OVERDOSE

REACTIONS (12)
  - Hypertrophic cardiomyopathy [Unknown]
  - Toxicity to various agents [Fatal]
  - Infarction [Unknown]
  - Cerebral infarction [Unknown]
  - Arrhythmia [Fatal]
  - Drug interaction [Fatal]
  - Intentional overdose [Fatal]
  - Drug administered to patient of inappropriate age [Unknown]
  - Off label use [Unknown]
  - Sudden death [Fatal]
  - Electrocardiogram QT prolonged [Unknown]
  - Contraindicated product administered [Unknown]
